FAERS Safety Report 6268903-3 (Version None)
Quarter: 2009Q3

REPORT INFORMATION
  Report Type: 
  Country: None (occurrence: None)
  Receive Date: 20090715
  Receipt Date: 20090706
  Transmission Date: 20100115
  Serious: Yes (Other)
  Sender: FDA-Public Use
  Company Number: PHEH2009US07136

PATIENT
  Sex: Female
  Weight: 84.354 kg

DRUGS (1)
  1. RECLAST [Suspect]
     Indication: OSTEOPOROSIS
     Dosage: 5 MG ONCE YEARLY
     Dates: start: 20090521

REACTIONS (5)
  - NAUSEA [None]
  - PAIN [None]
  - PYREXIA [None]
  - TRANSIENT ISCHAEMIC ATTACK [None]
  - VOMITING [None]
